FAERS Safety Report 7156550-0 (Version None)
Quarter: 2010Q4

REPORT INFORMATION
  Report Type: 
  Country: None (occurrence: None)
  Receive Date: 20101214
  Receipt Date: 20091117
  Transmission Date: 20110411
  Serious: No
  Sender: FDA-Public Use
  Company Number: US-ASTRAZENECA-2009SE26981

PATIENT
  Age: 882 Month
  Sex: Male
  Weight: 77.1 kg

DRUGS (9)
  1. CRESTOR [Suspect]
     Indication: BLOOD CHOLESTEROL INCREASED
     Route: 048
     Dates: start: 20090901
  2. BABY ASPRIN [Concomitant]
  3. VALSARTAN [Concomitant]
  4. MULTIVITAMINES [Concomitant]
  5. BYSTOLIC [Concomitant]
  6. PANTOPRAZOLE [Concomitant]
  7. FELODIPINE [Concomitant]
  8. XYLATAN [Concomitant]
  9. GUAIFENESIN [Concomitant]

REACTIONS (2)
  - BLOOD CREATINE [None]
  - GLAUCOMA [None]
